FAERS Safety Report 9682000 (Version 2)
Quarter: 2015Q2

REPORT INFORMATION
  Report Type: Spontaneous
  Country: US (occurrence: US)
  Receive Date: 20131111
  Receipt Date: 20150529
  Transmission Date: 20150821
  Serious: Yes (Hospitalization, Other)
  Sender: FDA-Public Use
  Company Number: PHHY2013US125203

PATIENT
  Age: 49 Year
  Sex: Male

DRUGS (5)
  1. RIBAVIRIN. [Suspect]
     Active Substance: RIBAVIRIN
     Indication: CHRONIC HEPATITIS C
     Dosage: 400 MG, DALY
     Route: 048
  2. LISINOPRIL. [Concomitant]
     Active Substance: LISINOPRIL
     Indication: PRODUCT USED FOR UNKNOWN INDICATION
     Dosage: 20 MG, QD
     Route: 065
  3. RIBAVIRIN. [Suspect]
     Active Substance: RIBAVIRIN
     Dosage: 200 MG, DAILY
     Route: 065
  4. PEGINTERFERON ALFA-2A [Suspect]
     Active Substance: PEGINTERFERON ALFA-2A
     Indication: CHRONIC HEPATITIS C
     Dosage: 135 UG, QW
     Route: 058
  5. FUROSEMIDE. [Concomitant]
     Active Substance: FUROSEMIDE
     Indication: PRODUCT USED FOR UNKNOWN INDICATION
     Dosage: 40 MG, QD

REACTIONS (11)
  - Haemoglobin decreased [Recovering/Resolving]
  - Irritability [Unknown]
  - Renal impairment [Unknown]
  - Arteriovenous fistula site infection [Unknown]
  - Weight decreased [Unknown]
  - Myalgia [Unknown]
  - Anaemia [Not Recovered/Not Resolved]
  - Acute kidney injury [Unknown]
  - Fatigue [Unknown]
  - Nausea [Unknown]
  - Disturbance in attention [Unknown]
